FAERS Safety Report 7600102-2 (Version None)
Quarter: 2011Q3

REPORT INFORMATION
  Report Type: 
  Country: None (occurrence: None)
  Receive Date: 20110711
  Receipt Date: 20110630
  Transmission Date: 20111222
  Serious: Yes (Death)
  Sender: FDA-Public Use
  Company Number: JP-JNJFOC-20110612374

PATIENT
  Age: 59 Year
  Sex: Male

DRUGS (13)
  1. MOBIC [Concomitant]
     Route: 065
  2. LEVOTOMIN [Concomitant]
     Route: 065
  3. ULCERLMIN [Concomitant]
     Route: 065
  4. LEVOFLOXACIN [Suspect]
     Indication: PRODUCT USED FOR UNKNOWN INDICATION
     Route: 065
     Dates: start: 20070201, end: 20070201
  5. MINIPRESS [Concomitant]
     Route: 065
  6. UBRETID [Concomitant]
     Route: 065
  7. ALL OTHER THERAPEUTIC PRODUCT [Suspect]
     Indication: PRODUCT USED FOR UNKNOWN INDICATION
     Route: 065
  8. BROVARIN [Concomitant]
     Route: 065
  9. MAGNESIUM OXIDE [Concomitant]
     Route: 065
  10. HALOPERIDOL [Suspect]
     Indication: PRODUCT USED FOR UNKNOWN INDICATION
     Route: 065
  11. TASMOLIN [Concomitant]
     Route: 065
  12. SENNARIDE [Concomitant]
     Route: 065
  13. MYORELARK [Concomitant]
     Route: 065

REACTIONS (1)
  - RHABDOMYOLYSIS [None]
